FAERS Safety Report 16373511 (Version 1)
Quarter: 2019Q2

REPORT INFORMATION
  Report Type: Spontaneous
  Country: US (occurrence: US)
  Receive Date: 20190424
  Receipt Date: 20190424
  Transmission Date: 20190711
  Serious: No
  Sender: FDA-Public Use
  Company Number: None

PATIENT
  Age: 56 Year
  Sex: Male

DRUGS (2)
  1. RIBAVIRIN TAB 200MG [Suspect]
     Active Substance: RIBAVIRIN
     Route: 048
     Dates: start: 201902
  2. VOSEVI [Concomitant]
     Active Substance: SOFOSBUVIR\VELPATASVIR\VOXILAPREVIR

REACTIONS (1)
  - Rash [None]

NARRATIVE: CASE EVENT DATE: 20190401
